FAERS Safety Report 18597108 (Version 8)
Quarter: 2021Q2

REPORT INFORMATION
  Report Type: Report from Study
  Country: CO (occurrence: CO)
  Receive Date: 20201209
  Receipt Date: 20210424
  Transmission Date: 20210717
  Serious: No
  Sender: FDA-Public Use
  Company Number: CO-TAKEDA-CO202028167

PATIENT
  Age: 34 Year
  Sex: Female
  Weight: 73 kg

DRUGS (8)
  1. ICATIBANT [Suspect]
     Active Substance: ICATIBANT ACETATE
     Dosage: 30MG/3ML, AS REQD (EVERY 6 HOURS , MAXIMUM OF 3 IN 24 HOURS)
     Route: 058
     Dates: start: 20160715
  2. ICATIBANT [Suspect]
     Active Substance: ICATIBANT ACETATE
     Indication: HEREDITARY ANGIOEDEMA
     Dosage: 30MG/3ML, AS REQD
     Route: 058
     Dates: start: 20160715
  3. ICATIBANT [Suspect]
     Active Substance: ICATIBANT ACETATE
     Dosage: 30MG/3ML, AS REQD (EVERY 6 HOURS , MAXIMUM OF 3 IN 24 HOURS)
     Route: 058
     Dates: start: 20200914
  4. ICATIBANT [Suspect]
     Active Substance: ICATIBANT ACETATE
     Dosage: 30MG/3ML, AS REQD (EVERY 6 HOURS , MAXIMUM OF 3 IN 24 HOURS)
     Route: 058
     Dates: start: 20160715
  5. ICATIBANT [Suspect]
     Active Substance: ICATIBANT ACETATE
     Dosage: 30 MG/3ML, PRN
     Route: 058
     Dates: start: 20160715
  6. ICATIBANT [Suspect]
     Active Substance: ICATIBANT ACETATE
     Indication: HEREDITARY ANGIOEDEMA
     Dosage: 30MG/3ML, AS REQD
     Route: 058
     Dates: start: 20160715
  7. ICATIBANT [Suspect]
     Active Substance: ICATIBANT ACETATE
     Dosage: 30MG/3ML, AS REQD (EVERY 6 HOURS , MAXIMUM OF 3 IN 24 HOURS)
     Route: 058
     Dates: start: 20200914
  8. ICATIBANT [Suspect]
     Active Substance: ICATIBANT ACETATE
     Dosage: 30 MG/3ML, PRN
     Route: 058
     Dates: start: 20160715

REACTIONS (5)
  - Body height abnormal [Unknown]
  - Speech disorder [Not Recovered/Not Resolved]
  - Inflammation [Recovered/Resolved]
  - Diarrhoea [Recovered/Resolved]
  - Dysphonia [Recovered/Resolved]

NARRATIVE: CASE EVENT DATE: 20210305
